FAERS Safety Report 8558307-2 (Version None)
Quarter: 2012Q3

REPORT INFORMATION
  Report Type: 
  Country: None (occurrence: None)
  Receive Date: 20120801
  Receipt Date: 20120708
  Transmission Date: 20120928
  Serious: No
  Sender: FDA-Public Use
  Company Number: US-009507513-2012SP028312

PATIENT

DRUGS (1)
  1. ASMANEX TWISTHALER [Suspect]
     Dosage: 220 MICROGRAM, UNK

REACTIONS (3)
  - PRURITUS [None]
  - URTICARIA [None]
  - DRUG ADMINISTRATION ERROR [None]
